FAERS Safety Report 8604949-5 (Version None)
Quarter: 2012Q3

REPORT INFORMATION
  Report Type: 
  Country: None (occurrence: None)
  Receive Date: 20120820
  Receipt Date: 20120815
  Transmission Date: 20120928
  Serious: Yes (Other)
  Sender: FDA-Public Use
  Company Number: US-PFIZER INC-2012198862

PATIENT
  Age: 21 Year
  Sex: Female
  Weight: 66.667 kg

DRUGS (8)
  1. MYCOPHENOLATE MOFETIL [Concomitant]
     Indication: PROPHYLAXIS AGAINST TRANSPLANT REJECTION
     Dosage: 750 MG, 2X/DAY
     Route: 048
     Dates: start: 20110622, end: 20120126
  2. OMEPRAZOLE [Concomitant]
     Dosage: UNK
     Dates: end: 20120126
  3. TACROLIMUS [Concomitant]
     Indication: TRANSPLANT
     Dosage: 5 MG, 2X/DAY
     Route: 048
  4. PREDNISONE [Concomitant]
     Indication: TRANSPLANT
     Dosage: 35 MG, 1X/DAY
     Route: 048
     Dates: start: 20120126
  5. SULFAMETHOXAZOLE AND TRIMETHOPRIM [Concomitant]
     Dosage: UNK
     Dates: end: 20120126
  6. RAPAMUNE [Suspect]
  7. ATORVASTATIN CALCIUM [Concomitant]
     Dosage: UNK
     Dates: end: 20120126
  8. LISINOPRIL [Concomitant]
     Dosage: UNK
     Dates: end: 20120126

REACTIONS (1)
  - ABORTION SPONTANEOUS [None]
